FAERS Safety Report 13018393 (Version 1)
Quarter: 2016Q4

REPORT INFORMATION
  Report Type: Other
  Country: JP (occurrence: JP)
  Receive Date: 20161212
  Receipt Date: 20161212
  Transmission Date: 20170207
  Serious: Yes (Other)
  Sender: FDA-Public Use
  Company Number: JP-CELLTRION HEALTHCARE HUNGARY KFT-2015JP005733

PATIENT

DRUGS (21)
  1. INFLIXIMAB BS FOR I.V. INFUSION100 MG NK [Suspect]
     Active Substance: INFLIXIMAB
     Dosage: 3 MG/KG/DAY
     Route: 042
     Dates: start: 20150501, end: 20150501
  2. INFLIXIMAB BS FOR I.V. INFUSION100 MG NK [Suspect]
     Active Substance: INFLIXIMAB
     Dosage: 200 MG/BODY/DAY
     Route: 042
     Dates: start: 20150821, end: 20150821
  3. RHEUMATREX [Concomitant]
     Active Substance: METHOTREXATE SODIUM
     Dosage: 10 MG, 1/WEEK
     Route: 065
     Dates: start: 20150306
  4. ITRACONAZOLE. [Concomitant]
     Active Substance: ITRACONAZOLE
     Indication: ANTIFUNGAL PROPHYLAXIS
     Dosage: 200 MG, ONCE A DAY
     Route: 065
     Dates: start: 20140118
  5. NEXIUM [Concomitant]
     Active Substance: ESOMEPRAZOLE MAGNESIUM
     Indication: GASTROOESOPHAGEAL REFLUX DISEASE
     Dosage: 20 MG, ONCE DAILY
     Route: 065
     Dates: start: 20140118
  6. FOSAMAC [Concomitant]
     Active Substance: ALENDRONATE SODIUM
     Indication: OSTEOPOROSIS
     Dosage: 5 MG, ONCE A DAY
     Route: 065
     Dates: start: 20120208
  7. INFLIXIMAB BS FOR I.V. INFUSION100 MG NK [Suspect]
     Active Substance: INFLIXIMAB
     Indication: RHEUMATOID ARTHRITIS
     Dosage: 3 MG/KG/DAY
     Route: 042
     Dates: start: 20150109, end: 20150109
  8. TEPRENONE [Concomitant]
     Active Substance: TEPRENONE
     Indication: GASTRITIS PROPHYLAXIS
     Dosage: 1 G, ONCE A DAY
     Route: 065
     Dates: start: 20141119
  9. FOLIAMIN [Concomitant]
     Active Substance: FOLIC ACID
     Indication: PROPHYLAXIS
     Dosage: 5 MG, 1/WEEK
     Route: 065
     Dates: start: 20120208
  10. RHEUMATREX [Concomitant]
     Active Substance: METHOTREXATE SODIUM
     Indication: RHEUMATOID ARTHRITIS
     Dosage: 10 MG, 1/WEEK
     Route: 065
     Dates: start: 20150109
  11. NEUROVITAN                         /00280501/ [Concomitant]
     Indication: PROPHYLAXIS
     Dosage: 2 DF, ONCE A DAY
     Route: 065
     Dates: start: 20120216
  12. INFLIXIMAB BS FOR I.V. INFUSION100 MG NK [Suspect]
     Active Substance: INFLIXIMAB
     Dosage: 200 MG/BODY/DAY
     Route: 042
     Dates: start: 20151211, end: 20151211
  13. INFLIXIMAB BS FOR I.V. INFUSION100 MG NK [Suspect]
     Active Substance: INFLIXIMAB
     Dosage: 200 MG/BODY/DAY
     Route: 042
     Dates: start: 20151016, end: 20151016
  14. RHEUMATREX [Concomitant]
     Active Substance: METHOTREXATE SODIUM
     Dosage: 10 MG, 1/WEEK
     Route: 065
     Dates: start: 20150501
  15. XYZAL [Concomitant]
     Active Substance: LEVOCETIRIZINE DIHYDROCHLORIDE
     Indication: PROPHYLAXIS
     Dosage: 5 MG, ONCE A DAY
     Route: 065
     Dates: start: 20120803
  16. INFLIXIMAB BS FOR I.V. INFUSION100 MG NK [Suspect]
     Active Substance: INFLIXIMAB
     Dosage: 3 MG/KG/DAY
     Route: 042
     Dates: start: 20150306, end: 20150306
  17. INFLIXIMAB BS FOR I.V. INFUSION100 MG NK [Suspect]
     Active Substance: INFLIXIMAB
     Dosage: 200 MG/BODY/DAY
     Route: 042
     Dates: start: 20150626, end: 20150626
  18. INFLIXIMAB BS FOR I.V. INFUSION100 MG NK [Suspect]
     Active Substance: INFLIXIMAB
     Dosage: 200 MG/BODY/DAY
     Route: 042
     Dates: start: 20160205, end: 20160205
  19. PREDNISOLONE. [Concomitant]
     Active Substance: PREDNISOLONE
     Indication: RHEUMATOID ARTHRITIS
     Dosage: 2 MG, ONCE A DAY
     Route: 065
     Dates: start: 20120208
  20. CELECOX [Concomitant]
     Active Substance: CELECOXIB
     Indication: RHEUMATOID ARTHRITIS
     Dosage: 400 MG, ONCE A DAY
     Route: 065
     Dates: start: 20140411
  21. ISONARIF [Concomitant]
     Active Substance: ISONIAZID\RIFAMPIN
     Indication: ANTIBIOTIC PROPHYLAXIS
     Dosage: 300 MG, ONCE A DAY
     Route: 065
     Dates: start: 20120216

REACTIONS (1)
  - Radius fracture [Recovering/Resolving]

NARRATIVE: CASE EVENT DATE: 20150329
